FAERS Safety Report 15311928 (Version 1)
Quarter: 2018Q3

REPORT INFORMATION
  Report Type: Spontaneous
  Country: US (occurrence: US)
  Receive Date: 20180823
  Receipt Date: 20180823
  Transmission Date: 20181010
  Serious: Yes (Hospitalization)
  Sender: FDA-Public Use
  Company Number: US-DSJP-DSU-2017-108813

PATIENT

DRUGS (4)
  1. BENICAR [Suspect]
     Active Substance: OLMESARTAN MEDOXOMIL
     Dosage: 20 MG 1/2 TABLET, QD
     Route: 048
  2. BENICAR [Suspect]
     Active Substance: OLMESARTAN MEDOXOMIL
     Indication: HYPERTENSION
     Dosage: UNK
     Dates: start: 2012
  3. BENICAR [Suspect]
     Active Substance: OLMESARTAN MEDOXOMIL
     Dosage: 5 MG, QD
     Route: 048
  4. BENICAR [Suspect]
     Active Substance: OLMESARTAN MEDOXOMIL
     Dosage: UNK
     Dates: end: 20150402

REACTIONS (7)
  - Small intestinal obstruction [Recovered/Resolved]
  - Haemorrhoids [Not Recovered/Not Resolved]
  - Polyp [Recovered/Resolved]
  - Diverticulum intestinal [Unknown]
  - Drug administration error [Unknown]
  - Sprue-like enteropathy [Unknown]
  - Erythema [Unknown]

NARRATIVE: CASE EVENT DATE: 20130312
